FAERS Safety Report 10363812 (Version 1)
Quarter: 2014Q3

REPORT INFORMATION
  Report Type: Spontaneous
  Country: JP (occurrence: None)
  Receive Date: 20140801
  Receipt Date: 20140801
  Transmission Date: 20150326
  Serious: Yes (Hospitalization, Other)
  Sender: FDA-Public Use
  Company Number: 2014SEB00012

PATIENT
  Age: 50 Year
  Sex: Male

DRUGS (3)
  1. INSULIN (INSULIN) [Concomitant]
     Active Substance: INSULIN NOS
  2. HYDROCORTISONE (HYDROCORTISONE) UNKNOWN [Suspect]
     Active Substance: HYDROCORTISONE
     Indication: STEROID THERAPY
  3. DEXAMETHASONE (DEXAMETHASONE) [Suspect]
     Active Substance: DEXAMETHASONE
     Indication: STEROID THERAPY

REACTIONS (14)
  - Skin striae [None]
  - Abscess fungal [None]
  - Cushingoid [None]
  - Central obesity [None]
  - Muscular weakness [None]
  - Intervertebral disc protrusion [None]
  - Condition aggravated [None]
  - Monoplegia [None]
  - Oedema [None]
  - Skin candida [None]
  - Blood pressure increased [None]
  - Diabetes mellitus inadequate control [None]
  - Pneumonia cryptococcal [None]
  - Iron deficiency anaemia [None]
